FAERS Safety Report 8120799-0 (Version None)
Quarter: 2012Q1

REPORT INFORMATION
  Report Type: 
  Country: None (occurrence: None)
  Receive Date: 20120207
  Receipt Date: 20110517
  Transmission Date: 20120608
  Serious: Yes (Life-Threatening, Other)
  Sender: FDA-Public Use
  Company Number: GB-WATSON-2011-07109

PATIENT
  Age: 63 Year
  Sex: Female

DRUGS (7)
  1. DEXTROSE [Suspect]
     Indication: PRODUCT USED FOR UNKNOWN INDICATION
     Dosage: 1 DOSE ONCE DAILY
     Route: 048
  2. SODIUM CHLORIDE [Suspect]
     Indication: PRODUCT USED FOR UNKNOWN INDICATION
     Dosage: 100 MMOL, DAILY
     Route: 042
  3. SODIUM BICARBONATE [Suspect]
     Indication: PRODUCT USED FOR UNKNOWN INDICATION
     Dosage: 1 DOSE, ONCE DAILY
  4. POTASSIUM CHLORIDE [Suspect]
     Indication: PRODUCT USED FOR UNKNOWN INDICATION
     Dosage: 1 DOSE ONCE DAILY
     Route: 048
  5. SODIUM CHLORIDE [Suspect]
     Dosage: 250 MMOL, DAILY
     Route: 042
  6. SODIUM CHLORIDE [Suspect]
     Dosage: 1 DOSE, ONCE DAILY
     Route: 048
  7. OMEPRAZOLE [Suspect]
     Indication: PRODUCT USED FOR UNKNOWN INDICATION
     Dosage: UNKNOWN
     Route: 048

REACTIONS (2)
  - TRACHEAL OBSTRUCTION [None]
  - ACIDOSIS HYPERCHLORAEMIC [None]
